FAERS Safety Report 5689714-3 (Version None)
Quarter: 2008Q1

REPORT INFORMATION
  Report Type: 
  Country: None (occurrence: None)
  Receive Date: 20080328
  Receipt Date: 20080318
  Transmission Date: 20080703
  Serious: Yes (Other)
  Sender: FDA-Public Use
  Company Number: 18792

PATIENT
  Age: 58 Year
  Sex: Female

DRUGS (5)
  1. ANZATAX [Suspect]
     Indication: OVARIAN CANCER
     Dosage: 375 MG PER_CYCLE IV
     Route: 042
     Dates: start: 20080219, end: 20080219
  2. SOLDESAM [Concomitant]
  3. KYTRIL [Concomitant]
  4. RANIDIL [Concomitant]
  5. FARGANESSE [Concomitant]

REACTIONS (1)
  - DRUG HYPERSENSITIVITY [None]
